FAERS Safety Report 8702125 (Version 3)
Quarter: 2012Q4

REPORT INFORMATION
  Report Type: 
  Country: US (occurrence: US)
  Receive Date: 20120803
  Receipt Date: 20121130
  Transmission Date: 20130627
  Serious: Yes (Hospitalization, Other)
  Sender: FDA-Public Use
  Company Number: US-PFIZER INC-2012185729

PATIENT
  Age: 74 Year
  Sex: Female

DRUGS (2)
  1. INLYTA [Suspect]
     Indication: RENAL CELL CARCINOMA
     Dosage: 5 mg, 2x/day
     Route: 048
     Dates: start: 20120710
  2. INLYTA [Suspect]
     Indication: MALIGNANT NEOPLASM OF URINARY ORGAN, SITE UNSPECIFIED
     Dosage: 2 mg, 2x/day (1 mg, two tablets BID)
     Dates: start: 20120819

REACTIONS (4)
  - Transient ischaemic attack [Unknown]
  - Hypertension [Recovered/Resolved]
  - Urine analysis abnormal [Unknown]
  - Gingival infection [Unknown]
